FAERS Safety Report 4303807-4 (Version None)
Quarter: 2004Q1

REPORT INFORMATION
  Report Type: 
  Country: None (occurrence: None)
  Receive Date: 20040224
  Receipt Date: 20040224
  Transmission Date: 20041129
  Serious: Yes (Other)
  Sender: FDA-Public Use
  Company Number: None

PATIENT
  Age: 30 Month
  Sex: Male
  Weight: 14 kg

DRUGS (3)
  1. OMEPRAZOLE [Suspect]
     Indication: CYSTIC FIBROSIS
     Dosage: 1/2 CAPSULE PO BID
     Route: 048
     Dates: start: 20031201, end: 20040201
  2. OMEPRAZOLE [Suspect]
     Indication: GASTROOESOPHAGEAL REFLUX DISEASE
     Dosage: 1/2 CAPSULE PO BID
     Route: 048
     Dates: start: 20031201, end: 20040201
  3. OMEPRAZOLE [Suspect]
     Indication: PANCREATIC INSUFFICIENCY
     Dosage: 1/2 CAPSULE PO BID
     Route: 048
     Dates: start: 20031201, end: 20040201

REACTIONS (4)
  - ABDOMINAL PAIN UPPER [None]
  - GASTROINTESTINAL DISORDER [None]
  - PHARMACEUTICAL PRODUCT COMPLAINT [None]
  - STEATORRHOEA [None]
